FAERS Safety Report 12810827 (Version 1)
Quarter: 2016Q4

REPORT INFORMATION
  Report Type: Spontaneous
  Country: US (occurrence: US)
  Receive Date: 20161004
  Receipt Date: 20161004
  Transmission Date: 20170207
  Serious: Yes (Other)
  Sender: FDA-Public Use
  Company Number: None

PATIENT
  Age: 5 Month
  Sex: Female
  Weight: 7.2 kg

DRUGS (2)
  1. TEETHING GEL [Suspect]
     Active Substance: UNSPECIFIED INGREDIENT
     Indication: TEETHING
     Dosage: ?          QUANTITY:1 DROP(S);?
     Route: 048
     Dates: start: 20160901, end: 20161004
  2. NASTATIN [Concomitant]

REACTIONS (2)
  - Stomatitis [None]
  - Candida infection [None]

NARRATIVE: CASE EVENT DATE: 20161004
